FAERS Safety Report 14859421 (Version 2)
Quarter: 2018Q2

REPORT INFORMATION
  Report Type: Report from Study
  Country: JP (occurrence: JP)
  Receive Date: 20180508
  Receipt Date: 20180509
  Transmission Date: 20180711
  Serious: Yes (Hospitalization)
  Sender: FDA-Public Use
  Company Number: JP-TAIHO ONCOLOGY INC-JPTT180363

PATIENT
  Age: 81 Year
  Sex: Male
  Weight: 57 kg

DRUGS (6)
  1. LONSURF [Suspect]
     Active Substance: TIPIRACIL HYDROCHLORIDE\TRIFLURIDINE
     Indication: RECTAL CANCER METASTATIC
     Dosage: CYCLE 3
     Route: 048
     Dates: start: 20180413, end: 20180416
  2. LONSURF [Suspect]
     Active Substance: TIPIRACIL HYDROCHLORIDE\TRIFLURIDINE
     Indication: RECTAL CANCER METASTATIC
     Dosage: 55 MG X 2/DAY, ON DAYS 1-5 AND 8-12 OF EACH 28-DAY CYCLE, CYCLES 1-2
     Route: 048
     Dates: start: 20180119
  3. AVASTIN [Suspect]
     Active Substance: BEVACIZUMAB
     Indication: RECTAL CANCER METASTATIC
     Dosage: CYCLES 1-3
     Route: 041
     Dates: start: 20180119, end: 20180413
  4. ETODOLAC. [Suspect]
     Active Substance: ETODOLAC
     Indication: CANCER PAIN
     Route: 048
     Dates: start: 20180413, end: 20180422
  5. OXINORM [Concomitant]
     Indication: CANCER PAIN
     Dosage: DOSE NOT REPORTED, AS NEEDED
     Route: 048
  6. REBAMIPIDE [Concomitant]
     Active Substance: REBAMIPIDE
     Dosage: DETAILS NOT REPORTED
     Route: 048

REACTIONS (1)
  - Duodenal perforation [Recovering/Resolving]

NARRATIVE: CASE EVENT DATE: 20180423
